FAERS Safety Report 17846473 (Version 1)
Quarter: 2020Q2

REPORT INFORMATION
  Report Type: Spontaneous
  Country: US (occurrence: US)
  Receive Date: 20200529
  Receipt Date: 20200529
  Transmission Date: 20200714
  Serious: Yes (Other)
  Sender: FDA-Public Use
  Company Number: None

PATIENT
  Age: 76 Year
  Sex: Female
  Weight: 62 kg

DRUGS (1)
  1. REMDESIVIR 100MG/20ML VIAL [Suspect]
     Active Substance: REMDESIVIR
     Indication: COVID-19
     Route: 042
     Dates: start: 20200523, end: 20200524

REACTIONS (8)
  - Serum ferritin increased [None]
  - Hypotension [None]
  - Right ventricular systolic pressure increased [None]
  - Blood creatine phosphokinase increased [None]
  - C-reactive protein increased [None]
  - Atrial fibrillation [None]
  - Blood lactate dehydrogenase increased [None]
  - Aspartate aminotransferase increased [None]

NARRATIVE: CASE EVENT DATE: 20200526
